FAERS Safety Report 8264151-6 (Version None)
Quarter: 2012Q2

REPORT INFORMATION
  Report Type: 
  Country: None (occurrence: None)
  Receive Date: 20120406
  Receipt Date: 20120326
  Transmission Date: 20120825
  Serious: Yes (Hospitalization)
  Sender: FDA-Public Use
  Company Number: JP-ELI_LILLY_AND_COMPANY-JP201203008601

PATIENT
  Sex: Female

DRUGS (3)
  1. THYROID HORMONES [Concomitant]
     Route: 048
  2. HUMATROPE [Suspect]
     Route: 058
  3. CORTRIL [Concomitant]
     Route: 048

REACTIONS (3)
  - NASOPHARYNGITIS [None]
  - DEHYDRATION [None]
  - VOMITING [None]
